FAERS Safety Report 21265378 (Version 1)
Quarter: 2022Q3

REPORT INFORMATION
  Report Type: Spontaneous
  Country: US (occurrence: None)
  Receive Date: 20220826
  Receipt Date: 20220826
  Transmission Date: 20221026
  Serious: Yes (Other)
  Sender: FDA-Public Use
  Company Number: None

PATIENT
  Age: 75 Year
  Sex: Male
  Weight: 120.6 kg

DRUGS (16)
  1. AMIODARONE HYDROCHLORIDE [Suspect]
     Active Substance: AMIODARONE HYDROCHLORIDE
     Indication: Atrial fibrillation
     Dosage: OTHER QUANTITY : 90 TABLET(S);?FREQUENCY : 3 TIMES A DAY;?
     Route: 048
     Dates: start: 20220707, end: 20220809
  2. ALLOPURINOL [Concomitant]
  3. AMLODIPINE [Concomitant]
  4. ATENOLOL [Concomitant]
  5. FINASTERIDE [Concomitant]
  6. LOSARTAN [Concomitant]
  7. TAMSULOSIN [Concomitant]
     Active Substance: TAMSULOSIN
  8. Hcl [Concomitant]
  9. XARELTO [Concomitant]
  10. ATORVASTATIN [Concomitant]
     Active Substance: ATORVASTATIN
  11. Vit D3 1000 IU [Concomitant]
  12. Vit C 500 mg [Concomitant]
  13. TYLENOL PM [Concomitant]
  14. ACETAMINOPHEN [Concomitant]
  15. Senna-docusate [Concomitant]
  16. MIRALAX [Concomitant]
     Active Substance: POLYETHYLENE GLYCOL 3350

REACTIONS (4)
  - Hallucination [None]
  - Amnesia [None]
  - Vision blurred [None]
  - Coordination abnormal [None]

NARRATIVE: CASE EVENT DATE: 20220707
